FAERS Safety Report 4614790-6 (Version None)
Quarter: 2005Q1

REPORT INFORMATION
  Report Type: 
  Country: None (occurrence: None)
  Receive Date: 20050322
  Receipt Date: 20050310
  Transmission Date: 20050727
  Serious: Yes (Death)
  Sender: FDA-Public Use
  Company Number: JP-NOVOPROD-242866

PATIENT
  Age: 20 Year
  Sex: Female

DRUGS (1)
  1. NOVOSEVEN [Suspect]
     Indication: ILL-DEFINED DISORDER
     Dosage: 4.8 MG, EVERY 3 HOURS
     Dates: start: 20050303, end: 20050304

REACTIONS (1)
  - DEATH [None]
